FAERS Safety Report 7423481-8 (Version None)
Quarter: 2011Q2

REPORT INFORMATION
  Report Type: 
  Country: None (occurrence: None)
  Receive Date: 20110419
  Receipt Date: 20110218
  Transmission Date: 20111010
  Serious: Yes (Other)
  Sender: FDA-Public Use
  Company Number: US-BAYER-201029335NA

PATIENT
  Age: 17 Year
  Sex: Female

DRUGS (4)
  1. OCELLA [Suspect]
     Indication: ORAL CONTRACEPTION
  2. OCELLA [Suspect]
     Indication: MENSTRUAL CYCLE MANAGEMENT
     Route: 048
  3. YASMIN [Suspect]
     Indication: ORAL CONTRACEPTION
  4. YASMIN [Suspect]
     Indication: MENSTRUAL CYCLE MANAGEMENT
     Route: 048

REACTIONS (2)
  - CHOLECYSTECTOMY [None]
  - CHOLECYSTITIS [None]
